FAERS Safety Report 9281683 (Version 1)
Quarter: 2013Q2

REPORT INFORMATION
  Report Type: Spontaneous
  Country: FR (occurrence: FR)
  Receive Date: 20130509
  Receipt Date: 20130509
  Transmission Date: 20140414
  Serious: Yes (Hospitalization)
  Sender: FDA-Public Use
  Company Number: FR-SANOFI-AVENTIS-2013SA042471

PATIENT
  Age: 3 Year
  Sex: Female
  Weight: 12 kg

DRUGS (1)
  1. STILNOX [Suspect]
     Indication: PRODUCT USED FOR UNKNOWN INDICATION
     Route: 048

REACTIONS (7)
  - Blood pressure decreased [Unknown]
  - Toxicity to various agents [Unknown]
  - Respiratory rate increased [Unknown]
  - Heart rate increased [Unknown]
  - Somnolence [Recovered/Resolved]
  - Incoherent [Unknown]
  - Balance disorder [Unknown]
